FAERS Safety Report 9377973 (Version 1)
Quarter: 2013Q3

REPORT INFORMATION
  Report Type: Spontaneous
  Country: BR (occurrence: BR)
  Receive Date: 20130701
  Receipt Date: 20130701
  Transmission Date: 20140515
  Serious: Yes (Hospitalization, Other)
  Sender: FDA-Public Use
  Company Number: BR-PFIZER INC-2013192360

PATIENT
  Age: 54 Year
  Sex: Male

DRUGS (1)
  1. LYRICA [Suspect]
     Indication: NEUROPATHY PERIPHERAL
     Dosage: 150 MG (2 CAPSULES OF 75MG EACH), 2X/DAY
     Route: 048
     Dates: start: 20121126

REACTIONS (6)
  - Urinary tract infection [Unknown]
  - Abasia [Not Recovered/Not Resolved]
  - Pulmonary embolism [Unknown]
  - Movement disorder [Not Recovered/Not Resolved]
  - Thrombosis [Unknown]
  - Weight decreased [Unknown]
